FAERS Safety Report 10039068 (Version 1)
Quarter: 2014Q1

REPORT INFORMATION
  Report Type: Spontaneous
  Country: US (occurrence: None)
  Receive Date: 20140324
  Receipt Date: 20140324
  Transmission Date: 20141002
  Serious: Yes (Death)
  Sender: FDA-Public Use
  Company Number: AUR-APL-2014-03242

PATIENT
  Age: 42 Year
  Sex: Female

DRUGS (5)
  1. ZOLPIDEM [Suspect]
     Indication: PRODUCT USED FOR UNKNOWN INDICATION
  2. INSULIN (INSULIN) [Suspect]
     Indication: PRODUCT USED FOR UNKNOWN INDICATION
     Route: 048
  3. NEBIVOLOL (NEBIVOLOL) (NEBIVOLOL) [Suspect]
     Indication: PRODUCT USED FOR UNKNOWN INDICATION
  4. TRIAZOLAM (TRIAZOLAM) [Suspect]
     Indication: PRODUCT USED FOR UNKNOWN INDICATION
  5. PREGABALIN (PREGABALIN) [Suspect]
     Indication: PRODUCT USED FOR UNKNOWN INDICATION

REACTIONS (7)
  - Completed suicide [None]
  - Intentional drug misuse [None]
  - Exposure via ingestion [None]
  - Toxicity to various agents [None]
  - Cardiac arrest [None]
  - Respiratory arrest [None]
  - Drug abuser [None]
